FAERS Safety Report 25495713 (Version 1)
Quarter: 2025Q2

REPORT INFORMATION
  Report Type: Spontaneous
  Country: US (occurrence: US)
  Receive Date: 20250630
  Receipt Date: 20250630
  Transmission Date: 20250717
  Serious: No
  Sender: SANOFI AVENTIS
  Company Number: US-SA-2025SA182075

PATIENT
  Age: 46 Year
  Sex: Female

DRUGS (10)
  1. DUPIXENT [Suspect]
     Active Substance: DUPILUMAB
     Indication: Dermatitis atopic
     Dosage: 300 MG, QOW
     Route: 058
     Dates: start: 20210309
  2. VITAMIN B12 [Concomitant]
     Active Substance: CYANOCOBALAMIN
  3. BUSPIRONE [Concomitant]
     Active Substance: BUSPIRONE HYDROCHLORIDE
  4. CELEBREX [Concomitant]
     Active Substance: CELECOXIB
  5. CLONAZEPAM [Concomitant]
     Active Substance: CLONAZEPAM
  6. FLUOCINOLONE ACETONIDE [Concomitant]
     Active Substance: FLUOCINOLONE ACETONIDE
  7. HYDROCORTISONE [Concomitant]
     Active Substance: HYDROCORTISONE
  8. LEXAPRO [Concomitant]
     Active Substance: ESCITALOPRAM OXALATE
  9. LISINOPRIL [Concomitant]
     Active Substance: LISINOPRIL
  10. CLOBETASOL [Concomitant]
     Active Substance: CLOBETASOL
     Indication: Dermatitis atopic

REACTIONS (1)
  - Dermatitis atopic [Recovered/Resolved]

NARRATIVE: CASE EVENT DATE: 20250601
